FAERS Safety Report 4326333-5 (Version None)
Quarter: 2004Q1

REPORT INFORMATION
  Report Type: 
  Country: None (occurrence: None)
  Receive Date: 20040323
  Receipt Date: 20040310
  Transmission Date: 20041129
  Serious: Yes (Hospitalization)
  Sender: FDA-Public Use
  Company Number: US-JNJFOC-20031100823

PATIENT
  Age: 61 Year
  Sex: Female
  Weight: 53.978 kg

DRUGS (7)
  1. REMICADE [Suspect]
     Indication: RHEUMATOID ARTHRITIS
     Dosage: 400 MG, INTRAVENOUS
     Route: 042
     Dates: start: 20030601
  2. METHOTREXATE [Suspect]
     Indication: DRUG USE FOR UNKNOWN INDICATION
     Dosage: , 4 IN 1 WEEK
  3. PREDNISONE [Concomitant]
  4. NAPROXEN [Concomitant]
  5. DARVON [Concomitant]
  6. PREMPRO 14/14 [Concomitant]
  7. ACIPHEX [Concomitant]

REACTIONS (12)
  - ACUTE MYOCARDIAL INFARCTION [None]
  - CARDIOGENIC SHOCK [None]
  - CORONARY ARTERY STENOSIS [None]
  - DILATATION VENTRICULAR [None]
  - DYSPEPSIA [None]
  - EJECTION FRACTION DECREASED [None]
  - HEADACHE [None]
  - INFLAMMATION [None]
  - MALAISE [None]
  - MYOCARDIAL ISCHAEMIA [None]
  - POSTOPERATIVE INFECTION [None]
  - PROCEDURAL SITE REACTION [None]
